FAERS Safety Report 6215664-X (Version None)
Quarter: 2009Q2

REPORT INFORMATION
  Report Type: 
  Country: None (occurrence: None)
  Receive Date: 20090605
  Receipt Date: 20090527
  Transmission Date: 20091009
  Serious: Yes (Other)
  Sender: FDA-Public Use
  Company Number: PHHY2009KR20839

PATIENT

DRUGS (1)
  1. EXELON [Suspect]
     Route: 062

REACTIONS (1)
  - SYNCOPE [None]
